FAERS Safety Report 8550679-8 (Version None)
Quarter: 2012Q3

REPORT INFORMATION
  Report Type: 
  Country: None (occurrence: None)
  Receive Date: 20120730
  Receipt Date: 20120723
  Transmission Date: 20120928
  Serious: Yes (Hospitalization)
  Sender: FDA-Public Use
  Company Number: US-GLAXOSMITHKLINE-A0943754A

PATIENT
  Age: 59 Year
  Sex: Female
  Weight: 95 kg

DRUGS (15)
  1. PLAVIX [Concomitant]
  2. ASPIRIN [Concomitant]
  3. LANTUS [Concomitant]
  4. VITAMIN B COMPLEX CAP [Concomitant]
  5. SPIRONOLACTONE [Concomitant]
  6. ZOLOFT [Concomitant]
  7. METFORMIN HCL [Concomitant]
  8. LEUKINE [Concomitant]
  9. LASIX [Concomitant]
  10. NEXIUM [Concomitant]
  11. TRACLEER [Concomitant]
  12. LIPITOR [Concomitant]
  13. VITAMIN D [Concomitant]
  14. FLOLAN [Suspect]
     Indication: PULMONARY ARTERIAL HYPERTENSION
     Dosage: 3.3NGKM SEE DOSAGE TEXT
     Route: 042
     Dates: start: 20100514
  15. ENALAPRIL MALEATE [Concomitant]

REACTIONS (3)
  - LUNG DISORDER [None]
  - EYE HAEMORRHAGE [None]
  - NAUSEA [None]
